FAERS Safety Report 18791134 (Version 1)
Quarter: 2021Q1

REPORT INFORMATION
  Report Type: Spontaneous
  Country: CH (occurrence: CH)
  Receive Date: 20210126
  Receipt Date: 20210126
  Transmission Date: 20210419
  Serious: Yes (Hospitalization)
  Sender: FDA-Public Use
  Company Number: CH-ELI_LILLY_AND_COMPANY-CH202012000385

PATIENT
  Age: 28 Year
  Sex: Female

DRUGS (3)
  1. TALTZ [Suspect]
     Active Substance: IXEKIZUMAB
     Indication: HIDRADENITIS
  2. DEPO?PROVERA [Concomitant]
     Active Substance: MEDROXYPROGESTERONE ACETATE
     Dosage: 200 MG, MONTHLY (1/M)
     Route: 065
     Dates: start: 2013
  3. TALTZ [Suspect]
     Active Substance: IXEKIZUMAB
     Indication: SAPHO SYNDROME
     Dosage: 80 MG, MONTHLY (1/M)
     Route: 058
     Dates: start: 20200414, end: 20200804

REACTIONS (3)
  - Crohn^s disease [Not Recovered/Not Resolved]
  - Anal abscess [Unknown]
  - Off label use [Unknown]

NARRATIVE: CASE EVENT DATE: 20200414
